FAERS Safety Report 6958704-2 (Version None)
Quarter: 2010Q3

REPORT INFORMATION
  Report Type: 
  Country: None (occurrence: None)
  Receive Date: 20100831
  Receipt Date: 20100817
  Transmission Date: 20110219
  Serious: Yes (Other)
  Sender: FDA-Public Use
  Company Number: PHHY2010FR51741

PATIENT
  Sex: Male
  Weight: 80 kg

DRUGS (2)
  1. TASIGNA [Suspect]
     Indication: CHRONIC MYELOID LEUKAEMIA
     Dosage: 800 MG
     Dates: start: 20100628, end: 20100704
  2. TASIGNA [Suspect]
     Dosage: 800 MG
     Dates: start: 20100710

REACTIONS (7)
  - CONJUNCTIVITIS [None]
  - FACE OEDEMA [None]
  - HEADACHE [None]
  - PRURITUS [None]
  - RASH [None]
  - RASH GENERALISED [None]
  - SKIN LESION [None]
